FAERS Safety Report 4619367-4 (Version None)
Quarter: 2005Q2

REPORT INFORMATION
  Report Type: 
  Country: None (occurrence: None)
  Receive Date: 20050321
  Receipt Date: 20040325
  Transmission Date: 20051028
  Serious: Yes (Death, Other)
  Sender: FDA-Public Use
  Company Number: 2004-03-1921

PATIENT
  Age: 53 Year
  Sex: Male

DRUGS (7)
  1. PEG-INTRON (PEGINTERFERON ALFA-2B) INJECTABLE POWDER [Suspect]
     Indication: HEPATITIS C
     Dosage: 120 MCG QWK, SUBCUTANEOUS
     Route: 058
     Dates: start: 20031031
  2. REBETOL [Suspect]
  3. REBETOL [Suspect]
     Indication: HEPATITIS C
     Dosage: 400 MG BID, ORAL
     Route: 048
     Dates: start: 20031031
  4. OXYCODONE HCL [Concomitant]
  5. MORPHINE [Concomitant]
  6. MUSCLE RELAXANT (NOS) [Concomitant]
  7. TRAZODONE [Concomitant]

REACTIONS (3)
  - ABDOMINAL PAIN [None]
  - COMPLETED SUICIDE [None]
  - FUNGAL INFECTION [None]
